FAERS Safety Report 7620885-5 (Version None)
Quarter: 2011Q3

REPORT INFORMATION
  Report Type: 
  Country: None (occurrence: None)
  Receive Date: 20110719
  Receipt Date: 20110714
  Transmission Date: 20111222
  Serious: Yes (Hospitalization, Other)
  Sender: FDA-Public Use
  Company Number: GB-PFIZER INC-2011160370

PATIENT
  Age: 83 Year
  Sex: Female

DRUGS (17)
  1. BETAHISTINE HYDROCHLORIDE [Concomitant]
  2. BUMETANIDE [Concomitant]
  3. CLOPIDOGREL [Concomitant]
  4. ISOSORBIDE MONONITRATE [Concomitant]
  5. OMEPRAZOLE [Concomitant]
  6. FELODIPINE [Concomitant]
  7. LACTULOSE [Concomitant]
  8. GLYCERYL TRINITRATE [Concomitant]
  9. DOXYCYCLINE HYCLATE [Suspect]
     Indication: INFECTION
     Dosage: 200 MG, SINGLE
     Route: 048
     Dates: start: 20110626, end: 20110626
  10. BISOPROLOL FUMARATE [Concomitant]
  11. LEVOTHYROXINE SODIUM [Concomitant]
  12. PARACETAMOL [Concomitant]
  13. DOXYCYCLINE HYCLATE [Suspect]
     Dosage: 100 MG, 1X/DAY
     Route: 048
     Dates: start: 20110627
  14. ACETYLSALICYLIC ACID [Concomitant]
  15. FLUOXETINE [Concomitant]
  16. RAMIPRIL [Concomitant]
  17. ATORVASTATIN CALCIUM [Suspect]
     Indication: CARDIOVASCULAR EVENT PROPHYLAXIS
     Dosage: 80 MG, 1X/DAY
     Route: 048
     Dates: start: 20110401, end: 20110706

REACTIONS (4)
  - CHOLESTASIS [None]
  - MYOSITIS [None]
  - BLOOD CREATINE PHOSPHOKINASE INCREASED [None]
  - LIVER FUNCTION TEST ABNORMAL [None]
